FAERS Safety Report 21029235 (Version 1)
Quarter: 2022Q3

REPORT INFORMATION
  Report Type: Spontaneous
  Country: US (occurrence: US)
  Receive Date: 20220630
  Receipt Date: 20220630
  Transmission Date: 20221026
  Serious: No
  Sender: FDA-Public Use
  Company Number: US-NOVARTISTESTPH-NVSC2022US148943

PATIENT
  Sex: Female

DRUGS (1)
  1. PROMACTA [Suspect]
     Active Substance: ELTROMBOPAG OLAMINE
     Indication: Immune thrombocytopenia
     Dosage: 25 MG, (TAKE 1 TABLET (25MG) BY MOUTH DAILY. ADMINISTER ON EMPTY STOMACH, 1HR BEFORE OR 2HRS AFTER A
     Route: 048

REACTIONS (1)
  - COVID-19 [Unknown]
